FAERS Safety Report 22117133 (Version 5)
Quarter: 2023Q2

REPORT INFORMATION
  Report Type: Spontaneous
  Country: JP (occurrence: JP)
  Receive Date: 20230320
  Receipt Date: 20230504
  Transmission Date: 20230722
  Serious: Yes (Other)
  Sender: FDA-Public Use
  Company Number: JP-MSD-M2023-10706

PATIENT
  Age: 78 Year
  Sex: Male
  Weight: 84 kg

DRUGS (12)
  1. CANCIDAS [Suspect]
     Active Substance: CASPOFUNGIN ACETATE
     Indication: Candida infection
     Dosage: 70 MILLIGRAM
     Route: 041
     Dates: start: 20230310, end: 20230310
  2. CANCIDAS [Suspect]
     Active Substance: CASPOFUNGIN ACETATE
     Dosage: 50 MILLIGRAM, QD
     Route: 041
     Dates: start: 20230311, end: 20230313
  3. AMIODARONE HYDROCHLORIDE [Suspect]
     Active Substance: AMIODARONE HYDROCHLORIDE
     Indication: Atrial fibrillation
     Dosage: 150 MILLIGRAM
     Route: 042
     Dates: start: 20230227, end: 20230227
  4. AMIODARONE HYDROCHLORIDE [Suspect]
     Active Substance: AMIODARONE HYDROCHLORIDE
     Dosage: 750 MILLIGRAM, Q24H
     Route: 042
     Dates: start: 20230227, end: 20230313
  5. LANSOPRAZOLE [Concomitant]
     Active Substance: LANSOPRAZOLE
     Dosage: 30 MILLIGRAM, QD
     Route: 048
  6. HERBALS [Concomitant]
     Active Substance: HERBALS
     Dosage: 2 DOSAGE FORM, TID
     Route: 048
  7. MIYA-BM [Concomitant]
     Active Substance: CLOSTRIDIUM BUTYRICUM SPORES STRAIN M-55
     Dosage: 1 DOSAGE FORM, TID
     Route: 048
  8. BISOPROLOL [Concomitant]
     Active Substance: BISOPROLOL
     Dosage: 2 MILLIGRAM, QD
  9. ONEPAL NO.2 [Concomitant]
     Dosage: 800 MILLILITER, Q24H
     Route: 051
  10. OCTREOTIDE RATIOPHARM [Concomitant]
     Dosage: 300 MICROGRAM, Q24H
     Route: 058
  11. FUROSEMIDE [Concomitant]
     Active Substance: FUROSEMIDE
     Dosage: 20 MILLIGRAM, QD
     Route: 051
  12. BROMHEXINE HYDROCHLORIDE [Concomitant]
     Active Substance: BROMHEXINE HYDROCHLORIDE
     Dosage: UNK
     Route: 065

REACTIONS (1)
  - Pancytopenia [Recovered/Resolved]

NARRATIVE: CASE EVENT DATE: 20230311
